FAERS Safety Report 9790214 (Version 6)
Quarter: 2014Q1

REPORT INFORMATION
  Report Type: Report from Study
  Country: US (occurrence: US)
  Receive Date: 20131231
  Receipt Date: 20140205
  Transmission Date: 20141002
  Serious: Yes (Hospitalization)
  Sender: FDA-Public Use
  Company Number: US-JNJFOC-20131216551

PATIENT
  Age: 18 Year
  Sex: Female
  Weight: 51.4 kg

DRUGS (3)
  1. REMICADE [Suspect]
     Indication: INFLAMMATORY BOWEL DISEASE
     Route: 042
  2. REMICADE [Suspect]
     Indication: INFLAMMATORY BOWEL DISEASE
     Route: 042
     Dates: start: 20130712, end: 20131019
  3. HUMIRA [Concomitant]
     Route: 065
     Dates: start: 20131127

REACTIONS (3)
  - Viral infection [Recovered/Resolved]
  - Dehydration [Recovered/Resolved]
  - Hypomagnesaemia [Recovered/Resolved]
